FAERS Safety Report 22637003 (Version 2)
Quarter: 2023Q2

REPORT INFORMATION
  Report Type: Spontaneous
  Country: US (occurrence: US)
  Receive Date: 20230626
  Receipt Date: 20230629
  Transmission Date: 20230721
  Serious: Yes (Other)
  Sender: FDA-Public Use
  Company Number: US-JNJFOC-20230645624

PATIENT

DRUGS (2)
  1. IBRUTINIB [Suspect]
     Active Substance: IBRUTINIB
     Indication: B-cell lymphoma
     Route: 048
  2. ZANUBRUTINIB [Suspect]
     Active Substance: ZANUBRUTINIB
     Indication: B-cell lymphoma
     Route: 065

REACTIONS (11)
  - Second primary malignancy [Unknown]
  - Haemorrhage [Unknown]
  - Hypertension [Unknown]
  - Anaemia [Unknown]
  - Infection [Unknown]
  - Atrial fibrillation [Unknown]
  - Opportunistic infection [Unknown]
  - Skin cancer [Unknown]
  - Neutropenia [Unknown]
  - Atrial flutter [Unknown]
  - Thrombocytopenia [Unknown]
